FAERS Safety Report 5916687-8 (Version None)
Quarter: 2008Q4

REPORT INFORMATION
  Report Type: 
  Country: None (occurrence: None)
  Receive Date: 20081013
  Receipt Date: 20081002
  Transmission Date: 20090506
  Serious: Yes (Death)
  Sender: FDA-Public Use
  Company Number: PH-BAXTER-2008BH010537

PATIENT
  Age: 66 Year
  Sex: Male

DRUGS (2)
  1. DIANEAL [Suspect]
     Indication: RENAL FAILURE
     Route: 033
     Dates: start: 20071201, end: 20080305
  2. DIANEAL [Suspect]
     Indication: RENAL FAILURE CHRONIC
     Route: 033
     Dates: start: 20071201, end: 20080305

REACTIONS (1)
  - RENAL FAILURE CHRONIC [None]
